FAERS Safety Report 10901884 (Version 2)
Quarter: 2015Q2

REPORT INFORMATION
  Report Type: Spontaneous
  Country: IT (occurrence: IT)
  Receive Date: 20150310
  Receipt Date: 20150612
  Transmission Date: 20150821
  Serious: Yes (Hospitalization)
  Sender: FDA-Public Use
  Company Number: IT-GLAXOSMITHKLINE-IT2015GSK030738

PATIENT
  Age: 75 Year
  Sex: Male

DRUGS (2)
  1. ALKERAN [Suspect]
     Active Substance: MELPHALAN
     Indication: PLASMA CELL LEUKAEMIA
     Dosage: 16 MG, CYC
     Route: 048
     Dates: start: 20141118, end: 20150213
  2. VELCADE [Suspect]
     Active Substance: BORTEZOMIB
     Indication: PLASMA CELL LEUKAEMIA
     Dosage: 2.31 MG, CYC
     Route: 058
     Dates: start: 20141118, end: 20150210

REACTIONS (3)
  - Pneumonitis [Recovering/Resolving]
  - Pyrexia [Recovering/Resolving]
  - Chest pain [Recovering/Resolving]

NARRATIVE: CASE EVENT DATE: 20150213
